FAERS Safety Report 4597127-0 (Version None)
Quarter: 2005Q1

REPORT INFORMATION
  Report Type: 
  Country: None (occurrence: None)
  Receive Date: 20050301
  Receipt Date: 20050210
  Transmission Date: 20050727
  Serious: No
  Sender: FDA-Public Use
  Company Number: A01200500715

PATIENT

DRUGS (1)
  1. ELIGARD [Suspect]
     Route: 058

REACTIONS (1)
  - NON-HODGKIN'S LYMPHOMA [None]
